FAERS Safety Report 6790213-6 (Version None)
Quarter: 2010Q2

REPORT INFORMATION
  Report Type: 
  Country: None (occurrence: None)
  Receive Date: 20100624
  Receipt Date: 20100616
  Transmission Date: 20101027
  Serious: Yes (Other)
  Sender: FDA-Public Use
  Company Number: CH-ASTRAZENECA-2010SE28413

PATIENT
  Age: 54 Year
  Sex: Male

DRUGS (1)
  1. SEROQUEL [Suspect]
     Dosage: 4 PER 1 TOTAL
     Route: 048
     Dates: start: 20100321, end: 20100321

REACTIONS (4)
  - ACCIDENTAL OVERDOSE [None]
  - ELECTROCARDIOGRAM QT INTERVAL ABNORMAL [None]
  - MEDICATION ERROR [None]
  - SOMNOLENCE [None]
